FAERS Safety Report 9280108 (Version 1)
Quarter: 2013Q2

REPORT INFORMATION
  Report Type: Spontaneous
  Country: US (occurrence: None)
  Receive Date: 20130507
  Receipt Date: 20130507
  Transmission Date: 20140414
  Serious: Yes (Life-Threatening)
  Sender: FDA-Public Use
  Company Number: None

PATIENT
  Age: 55 Year
  Sex: Female
  Weight: 56.7 kg

DRUGS (1)
  1. D.G. DAY TIME COLD + FLU RELIEF [Suspect]
     Indication: INFLUENZA
     Dosage: 1 DOSE
     Dates: start: 20130310

REACTIONS (6)
  - Feeling abnormal [None]
  - Palpitations [None]
  - Hallucination [None]
  - Insomnia [None]
  - Paraesthesia [None]
  - Tremor [None]
